FAERS Safety Report 13474549 (Version 2)
Quarter: 2017Q3

REPORT INFORMATION
  Report Type: Report from Study
  Country: US (occurrence: US)
  Receive Date: 20170424
  Receipt Date: 20170727
  Transmission Date: 20171127
  Serious: No
  Sender: FDA-Public Use
  Company Number: US-009507513-1704USA004519

PATIENT
  Sex: Female
  Weight: 84.31 kg

DRUGS (1)
  1. IMPLANON [Suspect]
     Active Substance: ETONOGESTREL
     Dosage: DOSE/FREQUENCY: 1 ROD
     Route: 059
     Dates: start: 20140202, end: 20170407

REACTIONS (2)
  - Device breakage [Recovered/Resolved]
  - Incorrect drug administration duration [Unknown]
